FAERS Safety Report 17434862 (Version 4)
Quarter: 2020Q2

REPORT INFORMATION
  Report Type: Report from Study
  Country: GB (occurrence: GB)
  Receive Date: 20200219
  Receipt Date: 20200513
  Transmission Date: 20200713
  Serious: Yes (Other)
  Sender: FDA-Public Use
  Company Number: NVSC2020GB045370

PATIENT
  Sex: Male

DRUGS (1)
  1. COSENTYX [Suspect]
     Active Substance: SECUKINUMAB
     Indication: PSORIATIC ARTHROPATHY
     Dosage: 150 MG, QW (ON WEEKS 0, 1, 2, 3 AND 4 FOLLOWED BY ONCE MONTHLY THEREAFTER AS DIRECTED) (PRE-FILLED P
     Route: 058
     Dates: start: 201911

REACTIONS (5)
  - Urinary tract infection [Unknown]
  - Neutrophil count abnormal [Unknown]
  - Anaemia [Unknown]
  - Psoriatic arthropathy [Unknown]
  - Pain [Unknown]
